FAERS Safety Report 11685042 (Version 1)
Quarter: 2015Q4

REPORT INFORMATION
  Report Type: Spontaneous
  Country: AU (occurrence: AU)
  Receive Date: 20151030
  Receipt Date: 20151030
  Transmission Date: 20160304
  Serious: No
  Sender: FDA-Public Use
  Company Number: AU-009507513-1510AUS011455

PATIENT

DRUGS (1)
  1. MIRTAZAPINE. [Suspect]
     Active Substance: MIRTAZAPINE
     Indication: PSYCHOTIC DISORDER
     Dosage: OVERDOSE
     Route: 048

REACTIONS (2)
  - Overdose [Unknown]
  - Electrocardiogram QT interval abnormal [Unknown]
